FAERS Safety Report 9307182 (Version 1)
Quarter: 2013Q2

REPORT INFORMATION
  Report Type: Report from Study
  Country: CA (occurrence: CA)
  Receive Date: 20130524
  Receipt Date: 20130524
  Transmission Date: 20140414
  Serious: Yes (Other)
  Sender: FDA-Public Use
  Company Number: CA-ROCHE-1227774

PATIENT
  Age: 22 Year
  Sex: Male
  Weight: 61.2 kg

DRUGS (9)
  1. RITUXAN [Suspect]
     Indication: GRANULOMATOSIS WITH POLYANGIITIS
     Route: 042
     Dates: start: 20121024
  2. RITUXAN [Suspect]
     Indication: VASCULITIS
  3. CELLCEPT [Concomitant]
  4. TYLENOL WITH CODEINE [Concomitant]
     Route: 065
  5. CALCIUM [Concomitant]
  6. VITAMIN D [Concomitant]
     Route: 048
     Dates: start: 20121024
  7. ACETAMINOPHEN [Concomitant]
     Indication: PREMEDICATION
     Route: 048
     Dates: start: 20121024
  8. DIPHENHYDRAMINE HYDROCHLORIDE [Concomitant]
     Indication: PREMEDICATION
     Route: 048
     Dates: start: 20121024
  9. PREDNISONE [Concomitant]
     Indication: PREMEDICATION
     Route: 048
     Dates: start: 20121023

REACTIONS (1)
  - Lung operation [Unknown]
